FAERS Safety Report 16469483 (Version 1)
Quarter: 2019Q2

REPORT INFORMATION
  Report Type: Spontaneous
  Country: CA (occurrence: CA)
  Receive Date: 20190624
  Receipt Date: 20190624
  Transmission Date: 20190711
  Serious: Yes (Death)
  Sender: FDA-Public Use
  Company Number: CA-OTSUKA-2019_011155

PATIENT
  Sex: Male

DRUGS (1)
  1. ABILIFY [Suspect]
     Active Substance: ARIPIPRAZOLE
     Indication: PRODUCT USED FOR UNKNOWN INDICATION
     Dosage: UNK
     Route: 065
     Dates: start: 201012

REACTIONS (9)
  - Emotional distress [Unknown]
  - Injury [Unknown]
  - Gambling disorder [Unknown]
  - Social problem [Unknown]
  - Death [Fatal]
  - Abnormal behaviour [Unknown]
  - Compulsive sexual behaviour [Unknown]
  - Economic problem [Unknown]
  - Compulsive shopping [Unknown]

NARRATIVE: CASE EVENT DATE: 2018
